FAERS Safety Report 5465566-1 (Version None)
Quarter: 2007Q3

REPORT INFORMATION
  Report Type: 
  Country: None (occurrence: None)
  Receive Date: 20070924
  Receipt Date: 20070918
  Transmission Date: 20080115
  Serious: Yes (Other)
  Sender: FDA-Public Use
  Company Number: US-ASTRAZENECA-2007UW19824

PATIENT
  Age: 55 Year
  Sex: Female
  Weight: 81.8 kg

DRUGS (3)
  1. PRILOSEC OTC [Suspect]
     Indication: GASTROOESOPHAGEAL REFLUX DISEASE
     Route: 048
  2. PRILOSEC OTC [Suspect]
     Route: 048
     Dates: start: 20060612, end: 20070710
  3. XANAX [Concomitant]
     Indication: ANXIETY
     Route: 048

REACTIONS (7)
  - ANAL CANCER [None]
  - DEPRESSION [None]
  - DRUG ADMINISTRATION ERROR [None]
  - RASH [None]
  - SWELLING FACE [None]
  - TINNITUS [None]
  - WEIGHT INCREASED [None]
